FAERS Safety Report 8188208-3 (Version None)
Quarter: 2012Q1

REPORT INFORMATION
  Report Type: 
  Country: None (occurrence: None)
  Receive Date: 20120306
  Receipt Date: 20120228
  Transmission Date: 20120608
  Serious: Yes (Hospitalization, Other)
  Sender: FDA-Public Use
  Company Number: US-ABBOTT-12P-163-0909293-00

PATIENT
  Sex: Female

DRUGS (2)
  1. HUMIRA [Suspect]
     Route: 058
  2. HUMIRA [Suspect]
     Indication: CROHN'S DISEASE
     Route: 058
     Dates: start: 20060101, end: 20100601

REACTIONS (6)
  - FREQUENT BOWEL MOVEMENTS [None]
  - INTESTINAL STENOSIS [None]
  - ABDOMINAL PAIN [None]
  - VOMITING [None]
  - ABDOMINAL ABSCESS [None]
  - POST PROCEDURAL COMPLICATION [None]
